FAERS Safety Report 5866659-7 (Version None)
Quarter: 2008Q3

REPORT INFORMATION
  Report Type: 
  Country: None (occurrence: None)
  Receive Date: 20080827
  Receipt Date: 20080811
  Transmission Date: 20090109
  Serious: Yes (Life-Threatening, Hospitalization)
  Sender: FDA-Public Use
  Company Number: MK-6032912

PATIENT
  Age: 49 Year
  Sex: Female

DRUGS (4)
  1. ACETAMINOPHEN [Suspect]
     Indication: DRUG USE FOR UNKNOWN INDICATION
     Dosage: 20 DF; 1_NULL_NULL
  2. RISPERDAL [Suspect]
     Indication: DRUG USE FOR UNKNOWN INDICATION
  3. SERTRALINE [Suspect]
     Indication: DRUG USE FOR UNKNOWN INDICATION
  4. CO-PROXAMOL (DI-GESIC /00016701/) [Concomitant]
     Indication: DRUG USE FOR UNKNOWN INDICATION
     Dosage: 60 DF; 1_NULL_NULL

REACTIONS (11)
  - ALANINE AMINOTRANSFERASE INCREASED [None]
  - BLOOD ALKALINE PHOSPHATASE INCREASED [None]
  - BRAIN OEDEMA [None]
  - CSF GLUCOSE DECREASED [None]
  - DIALYSIS [None]
  - GAMMA-GLUTAMYLTRANSFERASE INCREASED [None]
  - GENERAL PHYSICAL HEALTH DETERIORATION [None]
  - HEPATIC ENCEPHALOPATHY [None]
  - MULTIPLE DRUG OVERDOSE INTENTIONAL [None]
  - OLIGURIA [None]
  - PULMONARY OEDEMA [None]
